FAERS Safety Report 8762309 (Version 3)
Quarter: 2012Q4

REPORT INFORMATION
  Report Type: 
  Country: CN (occurrence: CN)
  Receive Date: 20120830
  Receipt Date: 20121029
  Transmission Date: 20130627
  Serious: Yes (Hospitalization)
  Sender: FDA-Public Use
  Company Number: CN-ROCHE-1102246

PATIENT
  Sex: Female

DRUGS (16)
  1. HERCEPTIN [Suspect]
     Indication: BREAST CANCER
     Dosage: first dose as 440mg
     Route: 041
     Dates: start: 20100423
  2. HERCEPTIN [Suspect]
     Route: 041
     Dates: start: 20100514
  3. HERCEPTIN [Suspect]
     Route: 041
     Dates: start: 20100613
  4. HERCEPTIN [Suspect]
     Route: 041
     Dates: start: 20100705
  5. HERCEPTIN [Suspect]
     Route: 041
     Dates: start: 20100726
  6. PREDNISONE [Suspect]
     Indication: ANAEMIA HAEMOLYTIC AUTOIMMUNE
     Dosage: decreased successively from the primary 12 dose forms
     Route: 048
     Dates: end: 201109
  7. TROPISETRON MESYLATE [Concomitant]
     Indication: CHEMOTHERAPY
     Route: 040
     Dates: start: 20100127, end: 20100517
  8. DEXAMETHASONE [Concomitant]
     Indication: BREAST CANCER
     Route: 040
     Dates: start: 20100127, end: 20100517
  9. DEXAMETHASONE [Concomitant]
     Indication: CHEMOTHERAPY
     Route: 048
     Dates: start: 20100127, end: 20100405
  10. CIMETIDINE [Concomitant]
     Indication: CHEMOTHERAPY
     Route: 040
     Dates: start: 20100127, end: 20100517
  11. DIPHENHYDRAMINE [Concomitant]
     Indication: CHEMOTHERAPY
     Route: 030
     Dates: start: 20100127, end: 20100517
  12. PACLITAXEL (NON-ROCHE/NON-COMPARATOR) [Concomitant]
     Indication: BREAST CANCER
     Route: 041
     Dates: start: 20100127, end: 20100517
  13. PACLITAXEL (NON-ROCHE/NON-COMPARATOR) [Concomitant]
     Indication: CHEMOTHERAPY
  14. CYCLOPHOSPHAMIDE [Concomitant]
     Indication: BREAST CANCER
     Route: 041
     Dates: start: 20100127, end: 20100517
  15. CYCLOPHOSPHAMIDE [Concomitant]
     Indication: CHEMOTHERAPY
  16. CREATINE PHOSPHATE SODIUM [Concomitant]
     Indication: CHEMOTHERAPY
     Route: 041
     Dates: start: 20100127, end: 20100517

REACTIONS (10)
  - Anaemia haemolytic autoimmune [Recovering/Resolving]
  - Erythema [Unknown]
  - Fatigue [Unknown]
  - Cardiac discomfort [Unknown]
  - White blood cell count increased [Unknown]
  - Osteoporosis [Unknown]
  - Osteoarthritis [Unknown]
  - Dizziness [Unknown]
  - Eczema [Not Recovered/Not Resolved]
  - Vomiting [Unknown]
